FAERS Safety Report 8962522 (Version 2)
Quarter: 2013Q1

REPORT INFORMATION
  Report Type: Report from Study
  Country: US (occurrence: US)
  Receive Date: 20121213
  Receipt Date: 20130305
  Transmission Date: 20140127
  Serious: Yes (Death)
  Sender: FDA-Public Use
  Company Number: US-GILEAD-2012-0066083

PATIENT
  Sex: Female

DRUGS (2)
  1. AZTREONAM LYSINE [Suspect]
     Indication: CYSTIC FIBROSIS
     Dosage: 75 MG, UNK
  2. AZTREONAM LYSINE [Suspect]
     Indication: PSEUDOMONAS TEST POSITIVE

REACTIONS (1)
  - Death [Fatal]
